FAERS Safety Report 17994557 (Version 2)
Quarter: 2020Q3

REPORT INFORMATION
  Report Type: Spontaneous
  Country: ES (occurrence: ES)
  Receive Date: 20200708
  Receipt Date: 20200718
  Transmission Date: 20201103
  Serious: Yes (Life-Threatening)
  Sender: FDA-Public Use
  Company Number: NVSC2020ES191891

PATIENT
  Age: 4 Year
  Sex: Male
  Weight: 13 kg

DRUGS (2)
  1. LAMOTRIGINE. [Suspect]
     Active Substance: LAMOTRIGINE
     Indication: EPILEPSY
     Dosage: 7.5 MG, Q12H
     Route: 048
     Dates: start: 20160123, end: 20160205
  2. KEPPRA [Suspect]
     Active Substance: LEVETIRACETAM
     Indication: EPILEPSY
     Dosage: 200 MG, Q12H
     Route: 048
     Dates: start: 20051201, end: 20160209

REACTIONS (1)
  - Toxic epidermal necrolysis [Recovered/Resolved with Sequelae]

NARRATIVE: CASE EVENT DATE: 20160205
